FAERS Safety Report 18369657 (Version 2)
Quarter: 2020Q4

REPORT INFORMATION
  Report Type: Spontaneous
  Country: IT (occurrence: IT)
  Receive Date: 20201012
  Receipt Date: 20201202
  Transmission Date: 20210114
  Serious: No
  Sender: FDA-Public Use
  Company Number: IT-AMGEN-ITASP2020162194

PATIENT

DRUGS (10)
  1. IMMUNOGLOBULIN I.V [Concomitant]
     Active Substance: HUMAN IMMUNOGLOBULIN G
     Indication: APLASIA PURE RED CELL
  2. PREDNISONE. [Concomitant]
     Active Substance: PREDNISONE
     Indication: APLASIA PURE RED CELL
  3. COTRIMOXAZOLE [Concomitant]
     Active Substance: SULFAMETHOXAZOLE\TRIMETHOPRIM
     Indication: PROPHYLAXIS
  4. OCTREOTIDE. [Concomitant]
     Active Substance: OCTREOTIDE
     Indication: NEOPLASM OF THYMUS
     Dosage: 30 MILLIGRAM, Q4WK
     Route: 030
  5. CYCLOSPORINE. [Concomitant]
     Active Substance: CYCLOSPORINE
     Indication: NEOPLASM OF THYMUS
     Dosage: ESCALATION DOSE 50 TO 200 MILLIGRAM, QD
  6. CYCLOSPORINE. [Concomitant]
     Active Substance: CYCLOSPORINE
     Indication: APLASIA PURE RED CELL
  7. PREDNISONE. [Concomitant]
     Active Substance: PREDNISONE
     Indication: NEOPLASM OF THYMUS
     Dosage: 0.6-1 MILLIGRAM/KILOGRAM, QD
  8. DARBEPOETIN ALFA [Suspect]
     Active Substance: DARBEPOETIN ALFA
     Indication: NEOPLASM OF THYMUS
     Dosage: 150 MICROGRAM, QWK
     Route: 065
  9. OCTREOTIDE. [Concomitant]
     Active Substance: OCTREOTIDE
     Indication: APLASIA PURE RED CELL
  10. IMMUNOGLOBULIN I.V [Concomitant]
     Active Substance: HUMAN IMMUNOGLOBULIN G
     Indication: NEOPLASM OF THYMUS
     Dosage: 500 MILLIGRAM/KILOGRAM, QD, FOR 5 DAYS/MONTHLY (TAPERED TO 30 GR EVERY 4 WEEKS)

REACTIONS (1)
  - Off label use [Unknown]
